FAERS Safety Report 4685777-2 (Version None)
Quarter: 2005Q2

REPORT INFORMATION
  Report Type: 
  Country: None (occurrence: None)
  Receive Date: 20050607
  Receipt Date: 20050607
  Transmission Date: 20051028
  Serious: Yes (Hospitalization)
  Sender: FDA-Public Use
  Company Number: None

PATIENT
  Age: 43 Year
  Sex: Female
  Weight: 61.2356 kg

DRUGS (2)
  1. VIOXX [Suspect]
     Indication: ARTHRITIS
     Dosage: 25-50 MG 1-2X DAILY
     Dates: start: 19990701, end: 20040929
  2. VIOXX [Suspect]
     Indication: COMPLEX REGIONAL PAIN SYNDROME
     Dosage: 25-50 MG 1-2X DAILY
     Dates: start: 19990701, end: 20040929

REACTIONS (2)
  - ABASIA [None]
  - ISCHAEMIC STROKE [None]
